FAERS Safety Report 8985691 (Version 1)
Quarter: 2012Q4

REPORT INFORMATION
  Report Type: 
  Country: US (occurrence: US)
  Receive Date: 20121226
  Receipt Date: 20121226
  Transmission Date: 20130627
  Serious: Yes (Hospitalization)
  Sender: FDA-Public Use
  Company Number: US-JNJFOC-20121208289

PATIENT
  Age: 46 Year
  Sex: Female

DRUGS (3)
  1. CONCERTA [Suspect]
     Indication: ATTENTION DEFICIT/HYPERACTIVITY DISORDER
     Route: 048
  2. COPAXONE [Suspect]
     Indication: MULTIPLE SCLEROSIS
     Route: 058
     Dates: start: 20121015
  3. PROVIGIL [Suspect]
     Indication: FATIGUE
     Route: 065

REACTIONS (3)
  - Bedridden [Recovered/Resolved]
  - Thinking abnormal [Recovered/Resolved]
  - Malaise [Recovered/Resolved]
